FAERS Safety Report 10235429 (Version 1)
Quarter: 2014Q2

REPORT INFORMATION
  Report Type: Spontaneous
  Country: CN (occurrence: CN)
  Receive Date: 20140613
  Receipt Date: 20140613
  Transmission Date: 20141212
  Serious: Yes (Other)
  Sender: FDA-Public Use
  Company Number: CN-PFIZER INC-2014160195

PATIENT
  Age: 33 Year
  Sex: Female
  Weight: 55 kg

DRUGS (2)
  1. PHARMORUBICIN [Suspect]
     Indication: BREAST CANCER
     Dosage: 140 MG, 1X/DAY
     Route: 041
     Dates: start: 20131003, end: 20131003
  2. CYCLOPHOSPHAMIDE [Suspect]
     Indication: BREAST CANCER
     Dosage: 900 MG, 1X/DAY
     Route: 041
     Dates: start: 20131003, end: 20131003

REACTIONS (1)
  - Hepatocellular injury [Recovering/Resolving]
